FAERS Safety Report 17016113 (Version 2)
Quarter: 2019Q4

REPORT INFORMATION
  Report Type: Report from Study
  Country: None (occurrence: US)
  Receive Date: 20191111
  Receipt Date: 20191223
  Transmission Date: 20200122
  Serious: Yes (Hospitalization)
  Sender: FDA-Public Use
  Company Number: US-ABBVIE-19K-163-2949722-00

PATIENT
  Age: 66 Year
  Sex: Female

DRUGS (1)
  1. HUMIRA [Suspect]
     Active Substance: ADALIMUMAB
     Indication: COLITIS ULCERATIVE
     Route: 058

REACTIONS (9)
  - Bursitis [Unknown]
  - Spondylitis [Unknown]
  - Upper respiratory tract infection [Unknown]
  - Colitis ulcerative [Unknown]
  - Device issue [Unknown]
  - Hypertension [Unknown]
  - Rectal haemorrhage [Unknown]
  - Rotator cuff syndrome [Unknown]
  - Rash [Recovering/Resolving]

NARRATIVE: CASE EVENT DATE: 2018
